FAERS Safety Report 9839051 (Version 1)
Quarter: 2014Q1

REPORT INFORMATION
  Report Type: Spontaneous
  Country: TW (occurrence: TW)
  Receive Date: 20140123
  Receipt Date: 20140123
  Transmission Date: 20141002
  Serious: Yes (Hospitalization)
  Sender: FDA-Public Use
  Company Number: PHHY2014TW004856

PATIENT
  Age: 91 Year
  Sex: Female

DRUGS (6)
  1. LEVETIRACETAM [Suspect]
     Indication: CONVULSION
  2. BENZYLHYDROCHLOROTHIAZIDE [Concomitant]
     Indication: HYPERTENSION
     Dosage: UNK
  3. AMLODIPINE [Concomitant]
  4. METOCLOPRAMIDE [Concomitant]
  5. SENNOSIDE [Concomitant]
  6. ESOMEPRAZOLE [Concomitant]

REACTIONS (9)
  - Acute generalised exanthematous pustulosis [Recovered/Resolved]
  - Rash pruritic [Recovered/Resolved]
  - Pyrexia [Recovered/Resolved]
  - Skin lesion [Recovered/Resolved]
  - Rash generalised [Recovered/Resolved]
  - Rash pustular [Recovered/Resolved]
  - Leukocytosis [Recovered/Resolved]
  - Hyperkeratosis [Recovered/Resolved]
  - Eczema [Recovered/Resolved]
